FAERS Safety Report 14064052 (Version 5)
Quarter: 2018Q1

REPORT INFORMATION
  Report Type: Spontaneous
  Country: DE (occurrence: DE)
  Receive Date: 20171009
  Receipt Date: 20180313
  Transmission Date: 20180508
  Serious: Yes (Hospitalization, Other)
  Sender: FDA-Public Use
  Company Number: DE-NOVOPROD-565638

PATIENT
  Age: 12 Year
  Sex: Male
  Weight: 50 kg

DRUGS (5)
  1. NOVORAPID [Suspect]
     Active Substance: INSULIN ASPART
     Dosage: 30-40U
     Route: 058
     Dates: start: 20170926, end: 20170926
  2. NOVORAPID [Suspect]
     Active Substance: INSULIN ASPART
     Dosage: 30-40U
     Route: 058
     Dates: start: 20170926, end: 20170926
  3. NOVORAPID [Suspect]
     Active Substance: INSULIN ASPART
     Dosage: 30-40U
     Route: 058
     Dates: start: 20170926, end: 20170926
  4. NOVORAPID [Suspect]
     Active Substance: INSULIN ASPART
     Indication: TYPE 1 DIABETES MELLITUS
     Dosage: 30-40U
     Route: 058
     Dates: end: 20170926
  5. NOVORAPID [Suspect]
     Active Substance: INSULIN ASPART
     Dosage: 30-40U
     Route: 058
     Dates: start: 20170928

REACTIONS (3)
  - Blood glucose increased [Recovered/Resolved]
  - Blood glucose increased [Recovered/Resolved]
  - Diabetic ketoacidosis [Recovered/Resolved]

NARRATIVE: CASE EVENT DATE: 20170925
